FAERS Safety Report 12789421 (Version 1)
Quarter: 2016Q3

REPORT INFORMATION
  Report Type: Spontaneous
  Country: US (occurrence: US)
  Receive Date: 20160928
  Receipt Date: 20160928
  Transmission Date: 20161109
  Serious: No
  Sender: FDA-Public Use
  Company Number: US-EISAI MEDICAL RESEARCH-EC-2016-020294

PATIENT
  Age: 88 Year
  Sex: Male

DRUGS (12)
  1. BOSUTINIB [Interacting]
     Active Substance: BOSUTINIB
     Indication: CHRONIC MYELOID LEUKAEMIA
     Dates: start: 201311, end: 2013
  2. NILOTINIB [Interacting]
     Active Substance: NILOTINIB
     Dates: start: 2011, end: 2011
  3. IMATINIB [Interacting]
     Active Substance: IMATINIB
     Dates: start: 201111
  4. BOSUTINIB [Interacting]
     Active Substance: BOSUTINIB
     Dates: start: 2013, end: 201401
  5. IMATINIB [Interacting]
     Active Substance: IMATINIB
     Indication: CHRONIC MYELOID LEUKAEMIA
     Dates: start: 201001, end: 201102
  6. IMATINIB [Interacting]
     Active Substance: IMATINIB
     Dates: start: 201308, end: 201311
  7. BOSUTINIB [Interacting]
     Active Substance: BOSUTINIB
     Dates: start: 201402, end: 2014
  8. RABEPRAZOLE [Suspect]
     Active Substance: RABEPRAZOLE
     Indication: PRODUCT USED FOR UNKNOWN INDICATION
     Dosage: UNKNOWN
     Route: 048
  9. NILOTINIB [Interacting]
     Active Substance: NILOTINIB
     Indication: CHRONIC MYELOID LEUKAEMIA
     Dates: start: 201109, end: 2011
  10. IMATINIB [Interacting]
     Active Substance: IMATINIB
     Dates: end: 201307
  11. DASATINIB [Interacting]
     Active Substance: DASATINIB
     Indication: CHRONIC MYELOID LEUKAEMIA
     Dates: start: 201103, end: 201107
  12. BOSUTINIB [Interacting]
     Active Substance: BOSUTINIB
     Dates: start: 201405, end: 201502

REACTIONS (2)
  - Inappropriate antidiuretic hormone secretion [Recovered/Resolved]
  - Drug interaction [Recovered/Resolved]

NARRATIVE: CASE EVENT DATE: 201011
